FAERS Safety Report 7049441-7 (Version None)
Quarter: 2010Q4

REPORT INFORMATION
  Report Type: 
  Country: None (occurrence: None)
  Receive Date: 20101018
  Receipt Date: 20101006
  Transmission Date: 20110411
  Serious: Yes (Hospitalization)
  Sender: FDA-Public Use
  Company Number: SK-ACTELION-A-CH2010-39205

PATIENT
  Sex: Male

DRUGS (5)
  1. MIGLUSTAT CAPSULE 100 MG NPC EU [Suspect]
     Indication: NIEMANN-PICK DISEASE
     Dosage: 200 MG, TID
     Route: 048
     Dates: start: 20100504, end: 20100814
  2. MIGLUSTAT CAPSULE 100 MG NPC EU [Suspect]
     Dosage: 100 MG, TID
     Route: 048
     Dates: start: 20071211
  3. MIGLUSTAT CAPSULE 100 MG NPC EU [Suspect]
     Dosage: 200 MG, TID
     Route: 048
  4. MIGLUSTAT CAPSULE 100 MG NPC EU [Suspect]
     Dosage: 100 MG, TID
     Route: 048
     Dates: end: 20100503
  5. VITAMIN B-12 [Concomitant]

REACTIONS (5)
  - AGGRESSION [None]
  - ANXIETY [None]
  - HALLUCINATION [None]
  - LOGORRHOEA [None]
  - PSYCHOTIC DISORDER DUE TO A GENERAL MEDICAL CONDITION [None]
